FAERS Safety Report 7510086-3 (Version None)
Quarter: 2011Q2

REPORT INFORMATION
  Report Type: 
  Country: None (occurrence: None)
  Receive Date: 20110527
  Receipt Date: 20110523
  Transmission Date: 20111010
  Serious: Yes (Hospitalization)
  Sender: FDA-Public Use
  Company Number: IT-ABBOTT-11P-083-0727713-00

PATIENT
  Sex: Female

DRUGS (2)
  1. UNSPECIFIED HYPNOTICS [Concomitant]
     Indication: PRODUCT USED FOR UNKNOWN INDICATION
  2. CLARITHROMYCIN [Suspect]
     Indication: PHARYNGITIS
     Dosage: 1 UNIT DAILY
     Route: 048
     Dates: start: 20110418, end: 20110423

REACTIONS (2)
  - HYPOTENSION [None]
  - DRUG HYPERSENSITIVITY [None]
